FAERS Safety Report 11610307 (Version 1)
Quarter: 2015Q4

REPORT INFORMATION
  Report Type: Report from Study
  Country: IN (occurrence: IN)
  Receive Date: 20151008
  Receipt Date: 20151008
  Transmission Date: 20160304
  Serious: Yes (Other)
  Sender: FDA-Public Use
  Company Number: IN-009507513-1510IND001090

PATIENT
  Sex: Female

DRUGS (2)
  1. CYCLOPHOSPHAMIDE. [Suspect]
     Active Substance: CYCLOPHOSPHAMIDE
     Indication: OVARIAN CANCER
     Dosage: DOSE OF MG DAILY AT 10AM
  2. TEMOZOLOMIDE. [Suspect]
     Active Substance: TEMOZOLOMIDE
     Indication: OVARIAN CANCER
     Dosage: 20 MG, BID FROM DAYS 1 TO 14 REPEATED EVERY 3 WEEKS

REACTIONS (1)
  - Febrile neutropenia [Unknown]
